FAERS Safety Report 9221086 (Version 1)
Quarter: 2013Q2

REPORT INFORMATION
  Report Type: Report from Study
  Country: US (occurrence: US)
  Receive Date: 20130409
  Receipt Date: 20130409
  Transmission Date: 20140414
  Serious: Yes (Hospitalization)
  Sender: FDA-Public Use
  Company Number: US-US-EMD SERONO, INC.-7203445

PATIENT
  Sex: Female

DRUGS (1)
  1. REBIF [Suspect]
     Indication: MULTIPLE SCLEROSIS
     Dates: start: 20121008, end: 2013

REACTIONS (4)
  - Confusional state [Unknown]
  - Somnolence [Unknown]
  - Delusion [Not Recovered/Not Resolved]
  - Malaise [Unknown]
